FAERS Safety Report 14195254 (Version 2)
Quarter: 2017Q4

REPORT INFORMATION
  Report Type: Report from Study
  Country: CO (occurrence: CO)
  Receive Date: 20171116
  Receipt Date: 20171218
  Transmission Date: 20180321
  Serious: Yes (Hospitalization)
  Sender: FDA-Public Use
  Company Number: CO-FERRINGPH-2017FE05467

PATIENT

DRUGS (1)
  1. SODIUM PICOSULFATE, MGO, CITRIC ACID [Suspect]
     Active Substance: ANHYDROUS CITRIC ACID\MAGNESIUM OXIDE\SODIUM PICOSULFATE
     Indication: BOWEL PREPARATION
     Dosage: 1 DF, EVERY 6TH HOURS
     Route: 048
     Dates: start: 20171027, end: 20171027

REACTIONS (6)
  - Traumatic intracranial haemorrhage [Recovered/Resolved]
  - Syncope [Recovered/Resolved]
  - Subarachnoid haemorrhage [Recovered/Resolved]
  - Malaise [Recovered/Resolved]
  - Diarrhoea [Recovered/Resolved]
  - Treatment noncompliance [Recovered/Resolved]

NARRATIVE: CASE EVENT DATE: 20171027
